FAERS Safety Report 10639888 (Version 2)
Quarter: 2014Q4

REPORT INFORMATION
  Report Type: Report from Study
  Country: DE (occurrence: DE)
  Receive Date: 20141209
  Receipt Date: 20141226
  Transmission Date: 20150529
  Serious: Yes (Other)
  Sender: FDA-Public Use
  Company Number: DE-ROCHE-1503271

PATIENT
  Age: 66 Year
  Sex: Female
  Weight: 92.7 kg

DRUGS (13)
  1. DIMETINDENE [Concomitant]
     Indication: ALLERGY PROPHYLAXIS
     Route: 065
     Dates: start: 20121126
  2. CYCLOPHOSPHAMIDE. [Suspect]
     Active Substance: CYCLOPHOSPHAMIDE
     Indication: B-CELL LYMPHOMA
     Dosage: DATE OF MOST RECENT DOSE OF CYCLOPHOSPHAMIDE PRIOR TO AE ONSET: 11/MAR/2013: 1500 MG
     Route: 042
     Dates: start: 20121127
  3. IBUPROFEN. [Concomitant]
     Active Substance: IBUPROFEN
     Indication: ABDOMINAL PAIN
     Dosage: AS NEEDED
     Route: 065
     Dates: start: 20121203
  4. ACICLOVIR [Concomitant]
     Active Substance: ACYCLOVIR
     Indication: ORAL HERPES
     Route: 065
     Dates: start: 20121211
  5. RANITIC [Concomitant]
     Active Substance: RANITIDINE HYDROCHLORIDE
     Route: 065
     Dates: start: 20121126
  6. VINCRISTINE [Suspect]
     Active Substance: VINCRISTINE
     Indication: B-CELL LYMPHOMA
     Dosage: DATE OF MOST RECENT DOSE OF VINCRISTINE PRIOR TO AE ONSET: 11/MAR/2013: 2 MG
     Route: 040
  7. HEPARIN CREME [Concomitant]
     Indication: PERIPHERAL SWELLING
     Dosage: STOP DATE IN 2013
     Route: 065
     Dates: start: 20130829
  8. PREDNISONE. [Suspect]
     Active Substance: PREDNISONE
     Indication: B-CELL LYMPHOMA
     Dosage: DATE OF MOST RECENT DOSE OF PREDNISONE/PREDNISOLONE/METHYLPREDNISOLONE PRIOR TO AE ONSET: 15/MAR/201
     Route: 048
     Dates: start: 20121126
  9. PARACETAMOL [Concomitant]
     Active Substance: ACETAMINOPHEN
     Indication: PAIN
     Route: 065
     Dates: start: 20121126
  10. AZITHROMYCIN [Concomitant]
     Active Substance: AZITHROMYCIN ANHYDROUS
     Indication: OTITIS MEDIA
     Route: 065
     Dates: start: 201411, end: 201411
  11. RITUXIMAB [Suspect]
     Active Substance: RITUXIMAB
     Indication: B-CELL LYMPHOMA
     Dosage: DATE OF MOST RECENT DOSE OF RITUXIMAB PRIOR TO AE ONSET: 06/OCT/2014: 500 ML (CONCENTRATION: 1.5 MG/
     Route: 042
     Dates: start: 20121126
  12. DOXORUBICIN [Suspect]
     Active Substance: DOXORUBICIN
     Indication: B-CELL LYMPHOMA
     Dosage: DATE OF MOST RECENT DOSE OF DOXORUBICIN PRIOR TO AE ONSET: 11/MAR/2013: 100 MG
     Route: 042
     Dates: start: 20121127
  13. AMLODIPIN [Concomitant]
     Active Substance: AMLODIPINE BESYLATE
     Indication: HYPERTENSION
     Dosage: BETWEEN 15/MAR/2014 TILL SAE ONSET
     Route: 065

REACTIONS (1)
  - Hypogammaglobulinaemia [Not Recovered/Not Resolved]

NARRATIVE: CASE EVENT DATE: 20141201
